FAERS Safety Report 13670404 (Version 1)
Quarter: 2017Q2

REPORT INFORMATION
  Report Type: Spontaneous
  Country: AU (occurrence: AU)
  Receive Date: 20170620
  Receipt Date: 20170620
  Transmission Date: 20170830
  Serious: Yes (Death)
  Sender: FDA-Public Use
  Company Number: AU-INSYS THERAPEUTICS, INC-INS201706-000378

PATIENT
  Age: 34 Year
  Sex: Male

DRUGS (4)
  1. HEROIN [Suspect]
     Active Substance: DIAMORPHINE
  2. PARACETAMOL [Suspect]
     Active Substance: ACETAMINOPHEN
  3. FENTANYL. [Suspect]
     Active Substance: FENTANYL
     Indication: PRODUCT USED FOR UNKNOWN INDICATION
  4. BUPRENORPHINE. [Suspect]
     Active Substance: BUPRENORPHINE

REACTIONS (2)
  - Overdose [Fatal]
  - Toxicity to various agents [Fatal]

NARRATIVE: CASE EVENT DATE: 201510
